FAERS Safety Report 21811298 (Version 1)
Quarter: 2023Q1

REPORT INFORMATION
  Report Type: Spontaneous
  Country: US (occurrence: US)
  Receive Date: 20230103
  Receipt Date: 20230103
  Transmission Date: 20230417
  Serious: No
  Sender: FDA-Public Use
  Company Number: US-PFIZER INC-202201399867

PATIENT
  Age: 41 Year
  Sex: Female
  Weight: 79.83 kg

DRUGS (4)
  1. PAXLOVID [Suspect]
     Active Substance: NIRMATRELVIR\RITONAVIR
     Indication: COVID-19 treatment
     Dosage: 3 PILLS IN THE MORNING AND 3 AT NIGHT; 2 OF THE PILLS ARE NIRMATRELVIR AND 1 IS RITONAVIR
     Dates: start: 20221226
  2. TYLENOL [Concomitant]
     Active Substance: ACETAMINOPHEN
     Indication: Pyrexia
     Dosage: UNK
  3. TYLENOL [Concomitant]
     Active Substance: ACETAMINOPHEN
     Indication: Headache
  4. TYLENOL [Concomitant]
     Active Substance: ACETAMINOPHEN
     Indication: Pain

REACTIONS (6)
  - Therapeutic product effect incomplete [Unknown]
  - Dysgeusia [Not Recovered/Not Resolved]
  - Bladder pain [Unknown]
  - Bladder discomfort [Unknown]
  - Back pain [Unknown]
  - Dysuria [Unknown]

NARRATIVE: CASE EVENT DATE: 20221226
